FAERS Safety Report 23576825 (Version 2)
Quarter: 2024Q1

REPORT INFORMATION
  Report Type: Spontaneous
  Country: CN (occurrence: None)
  Receive Date: 20240228
  Receipt Date: 20240305
  Transmission Date: 20240410
  Serious: Yes (Other)
  Sender: FDA-Public Use
  Company Number: 2024A046558

PATIENT
  Age: 24887 Day
  Sex: Female
  Weight: 48.6 kg

DRUGS (2)
  1. OLAPARIB [Suspect]
     Active Substance: OLAPARIB
     Indication: Ovarian cancer
     Route: 048
     Dates: start: 20230222, end: 20231226
  2. CATEQUENTINIB DIHYDROCHLORIDE [Suspect]
     Active Substance: CATEQUENTINIB DIHYDROCHLORIDE
     Indication: Ovarian cancer
     Route: 048
     Dates: start: 20230114, end: 20231226

REACTIONS (3)
  - Myelosuppression [Recovering/Resolving]
  - Dyspnoea [Recovering/Resolving]
  - Hypoproteinaemia [Unknown]

NARRATIVE: CASE EVENT DATE: 20240127
